FAERS Safety Report 18077721 (Version 2)
Quarter: 2020Q3

REPORT INFORMATION
  Report Type: Report from Study
  Country: CZ (occurrence: CZ)
  Receive Date: 20200727
  Receipt Date: 20200814
  Transmission Date: 20201103
  Serious: Yes (Death, Other)
  Sender: FDA-Public Use
  Company Number: CZ-INCYTE CORPORATION-2020IN007002

PATIENT

DRUGS (3)
  1. JAKAVI [Suspect]
     Active Substance: RUXOLITINIB
     Dosage: 20 MG, BID
     Route: 065
     Dates: start: 20181001, end: 20181116
  2. JAKAVI [Suspect]
     Active Substance: RUXOLITINIB
     Indication: TOXICITY TO VARIOUS AGENTS
     Dosage: 20 MG, BID
     Route: 065
     Dates: start: 20161108
  3. JAKAVI [Suspect]
     Active Substance: RUXOLITINIB
     Dosage: UNK
     Route: 065
     Dates: end: 20180903

REACTIONS (7)
  - Product use in unapproved indication [Unknown]
  - Sepsis [Fatal]
  - Anaemia [Unknown]
  - Infection [Fatal]
  - Therapeutic response decreased [Unknown]
  - Myeloproliferative neoplasm [Fatal]
  - Myelofibrosis [Unknown]

NARRATIVE: CASE EVENT DATE: 20180810
